FAERS Safety Report 23019646 (Version 1)
Quarter: 2023Q4

REPORT INFORMATION
  Report Type: Spontaneous
  Country: US (occurrence: US)
  Receive Date: 20231003
  Receipt Date: 20231003
  Transmission Date: 20240110
  Serious: Yes (Life-Threatening, Hospitalization, Other)
  Sender: FDA-Public Use
  Company Number: US-drreddys-SPO/USA/23/0178325

PATIENT
  Age: 56 Year
  Sex: Male

DRUGS (6)
  1. FLUOXETINE [Suspect]
     Active Substance: FLUOXETINE HYDROCHLORIDE
     Indication: Depression
     Route: 048
  2. FLUOXETINE [Suspect]
     Active Substance: FLUOXETINE HYDROCHLORIDE
     Dosage: BY MOUTH
     Route: 048
  3. OXYGEN [Concomitant]
     Active Substance: OXYGEN
     Indication: Chronic obstructive pulmonary disease
  4. GABAPENTIN [Concomitant]
     Active Substance: GABAPENTIN
     Indication: Neuralgia
     Route: 048
  5. ALBUTEROL [Concomitant]
     Active Substance: ALBUTEROL
     Indication: Product used for unknown indication
     Route: 055
  6. BUDESONIDE, FORMOTEROL [Concomitant]
     Indication: Product used for unknown indication
     Dosage: 160/4.5 MG, 2 INHALATIONS TWICE DAILY
     Route: 055

REACTIONS (2)
  - Serotonin syndrome [Recovered/Resolved]
  - Inappropriate schedule of product administration [Recovered/Resolved]
